FAERS Safety Report 7520539-X (Version None)
Quarter: 2011Q2

REPORT INFORMATION
  Report Type: 
  Country: None (occurrence: None)
  Receive Date: 20110602
  Receipt Date: 20110519
  Transmission Date: 20111010
  Serious: Yes (Hospitalization)
  Sender: FDA-Public Use
  Company Number: US-ELI_LILLY_AND_COMPANY-US201103003537

PATIENT
  Sex: Female

DRUGS (17)
  1. FORTEO [Suspect]
     Indication: OSTEOPOROSIS
     Dosage: 20 UG, DAILY (1/D)
  2. FLUOXETINE HCL [Concomitant]
     Dosage: UNK, UNKNOWN
  3. ALENDRONATE SODIUM [Concomitant]
     Dosage: UNK, UNKNOWN
  4. OMEPRAZOLE [Concomitant]
     Dosage: UNK, UNKNOWN
  5. LISINOPRIL [Concomitant]
     Dosage: UNK, UNKNOWN
  6. FUROSEMIDE [Concomitant]
     Dosage: UNK, UNKNOWN
  7. FENTANYL [Concomitant]
     Dosage: UNK, UNKNOWN
  8. NOVOLOG [Concomitant]
     Dosage: UNK, UNKNOWN
  9. ENBREL [Concomitant]
     Dosage: UNK, UNKNOWN
  10. PRAVASTATIN [Concomitant]
     Dosage: UNK, UNKNOWN
  11. LOVAZA [Concomitant]
     Dosage: UNK, UNKNOWN
  12. PERCOCET [Concomitant]
     Dosage: UNK, UNKNOWN
  13. LEVOTHROID [Concomitant]
     Dosage: UNK, UNKNOWN
  14. PREDNISONE [Concomitant]
     Dosage: UNK, UNKNOWN
  15. LANTUS [Concomitant]
     Dosage: UNK, UNKNOWN
  16. CALCITRAL [Concomitant]
     Dosage: UNK, UNKNOWN
  17. SODIUM BICARBONATE [Concomitant]
     Dosage: UNK, UNKNOWN

REACTIONS (2)
  - URINARY TRACT INFECTION [None]
  - PNEUMONIA [None]
